FAERS Safety Report 9711557 (Version 2)
Quarter: 2013Q4

REPORT INFORMATION
  Report Type: Spontaneous
  Country: US (occurrence: US)
  Receive Date: 20131126
  Receipt Date: 20131126
  Transmission Date: 20140711
  Serious: No
  Sender: FDA-Public Use
  Company Number: US-BRISTOL-MYERS SQUIBB COMPANY-19079425

PATIENT
  Age: 67 Year
  Sex: Female
  Weight: 90.7 kg

DRUGS (6)
  1. BYDUREON 2MG SUSPENSION [Suspect]
     Indication: TYPE 2 DIABETES MELLITUS
     Route: 058
     Dates: start: 20130703
  2. NOVOLOG [Concomitant]
     Indication: BLOOD GLUCOSE INCREASED
     Dosage: NOVOLOG WITH MEALS AND AS NEEDED
  3. METFORMIN [Concomitant]
  4. SYNTHROID [Concomitant]
  5. PROTONIX [Concomitant]
  6. LASIX [Concomitant]

REACTIONS (3)
  - Nausea [Recovered/Resolved]
  - Vomiting [Recovered/Resolved]
  - Pyrexia [Unknown]
